FAERS Safety Report 6294289-4 (Version None)
Quarter: 2009Q3

REPORT INFORMATION
  Report Type: 
  Country: None (occurrence: None)
  Receive Date: 20090803
  Receipt Date: 20090512
  Transmission Date: 20100115
  Serious: No
  Sender: FDA-Public Use
  Company Number: A0783744A

PATIENT
  Age: 49 Year
  Sex: Female

DRUGS (2)
  1. NICORETTE [Suspect]
  2. NICORETTE [Suspect]
     Dates: start: 20090511

REACTIONS (4)
  - DYSPEPSIA [None]
  - NAUSEA [None]
  - NICOTINE DEPENDENCE [None]
  - RETCHING [None]
